FAERS Safety Report 5490749-4 (Version None)
Quarter: 2007Q4

REPORT INFORMATION
  Report Type: 
  Country: None (occurrence: None)
  Receive Date: 20071019
  Receipt Date: 20071009
  Transmission Date: 20080405
  Serious: Yes (Hospitalization)
  Sender: FDA-Public Use
  Company Number: FR-ASTRAZENECA-2007CG01435

PATIENT
  Age: 894 Month
  Sex: Female
  Weight: 73 kg

DRUGS (15)
  1. OMEPRAZOLE [Suspect]
     Route: 048
     Dates: end: 20070831
  2. GLUCOPHAGE [Suspect]
     Route: 048
  3. PERINDOPRIL ERBUMINE [Concomitant]
  4. SECTRAL [Concomitant]
  5. FLECAINIDE ACETATE [Concomitant]
  6. KARDEGIC [Concomitant]
  7. DIAMICRON [Concomitant]
  8. FENOFIBRATE [Concomitant]
  9. SPAGULAX [Concomitant]
  10. DUPHALAC [Concomitant]
  11. DIOSMIN [Concomitant]
  12. CACIT D3 [Concomitant]
  13. DAFALGAN [Concomitant]
  14. RELVENE [Concomitant]
  15. HEXAQUINE [Concomitant]
     Dosage: 120 + 32 MG DAILY

REACTIONS (4)
  - HYPERKALAEMIA [None]
  - IRON DEFICIENCY [None]
  - RENAL FAILURE [None]
  - VITAMIN B12 DEFICIENCY [None]
